FAERS Safety Report 14130642 (Version 2)
Quarter: 2018Q1

REPORT INFORMATION
  Report Type: Report from Study
  Country: US (occurrence: US)
  Receive Date: 20171026
  Receipt Date: 20180123
  Transmission Date: 20180508
  Serious: No
  Sender: FDA-Public Use
  Company Number: US-AMGEN-USASL2017137143

PATIENT
  Age: 61 Year
  Sex: Female

DRUGS (1)
  1. REPATHA [Suspect]
     Active Substance: EVOLOCUMAB
     Indication: HYPERLIPIDAEMIA
     Dosage: 140 MG, UNK
     Route: 058
     Dates: end: 20170906

REACTIONS (6)
  - Arthralgia [Unknown]
  - Bone pain [Unknown]
  - Gait disturbance [Unknown]
  - Rhinorrhoea [Not Recovered/Not Resolved]
  - Myalgia [Unknown]
  - Pain [Unknown]
